FAERS Safety Report 8614036-8 (Version None)
Quarter: 2012Q3

REPORT INFORMATION
  Report Type: 
  Country: None (occurrence: None)
  Receive Date: 20120823
  Receipt Date: 20120810
  Transmission Date: 20120928
  Serious: Yes (Hospitalization, Other)
  Sender: FDA-Public Use
  Company Number: US-009507513-1204USA02812

PATIENT

DRUGS (5)
  1. CALCIUM (UNSPECIFIED) [Concomitant]
     Dosage: 600-1500 MG QD
  2. FOSAMAX [Suspect]
     Indication: OSTEOPOROSIS
     Dosage: 10 MG, QD
     Route: 048
     Dates: start: 19970211
  3. FOSAMAX [Suspect]
     Dosage: 70 MG, QW
     Dates: start: 20010605, end: 20100508
  4. SYNTHROID [Concomitant]
     Dosage: 75 MG, QD
  5. ALENDRONATE SODIUM [Suspect]
     Dosage: 70 MG, QW
     Route: 048

REACTIONS (14)
  - LOW TURNOVER OSTEOPATHY [None]
  - FRACTURE DELAYED UNION [None]
  - OSTEOPENIA [None]
  - BACK PAIN [None]
  - TOOTH DISORDER [None]
  - OPEN REDUCTION OF FRACTURE [None]
  - ARTHRITIS [None]
  - FOOT FRACTURE [None]
  - GOUT [None]
  - HYPERTHYROIDISM [None]
  - FEMUR FRACTURE [None]
  - GASTROINTESTINAL DISORDER [None]
  - GOITRE [None]
  - VOMITING [None]
